FAERS Safety Report 5431211-4 (Version None)
Quarter: 2007Q3

REPORT INFORMATION
  Report Type: 
  Country: None (occurrence: None)
  Receive Date: 20070830
  Receipt Date: 20070822
  Transmission Date: 20080115
  Serious: Yes (Death)
  Sender: FDA-Public Use
  Company Number: FR-AMGEN-US208991

PATIENT
  Sex: Female

DRUGS (4)
  1. ENBREL [Suspect]
     Indication: DRUG USE FOR UNKNOWN INDICATION
     Dosage: UNKNOWN
     Route: 058
  2. REMICADE [Suspect]
     Dosage: UNKNOWN
     Route: 065
  3. HUMIRA [Suspect]
     Dosage: UNKNOWN
     Route: 065
  4. KINERET [Suspect]
     Indication: DRUG USE FOR UNKNOWN INDICATION
     Route: 065

REACTIONS (1)
  - LYMPHOMA [None]
